FAERS Safety Report 7331330-1 (Version None)
Quarter: 2011Q1

REPORT INFORMATION
  Report Type: 
  Country: None (occurrence: None)
  Receive Date: 20110304
  Receipt Date: 20110223
  Transmission Date: 20110831
  Serious: Yes (Other)
  Sender: FDA-Public Use
  Company Number: US-JNJFOC-20110107940

PATIENT
  Sex: Male
  Weight: 96.16 kg

DRUGS (7)
  1. REMICADE [Suspect]
     Indication: CROHN'S DISEASE
     Dosage: SECOND INFUSION
     Route: 042
  2. REMICADE [Suspect]
     Route: 042
  3. ZOSYN [Concomitant]
     Indication: CELLULITIS
     Route: 042
  4. HUMIRA [Concomitant]
     Route: 065
  5. CIMZIA [Concomitant]
     Route: 065
  6. REMICADE [Suspect]
     Route: 042
  7. APRISO [Concomitant]
     Dosage: DOSE 3.75
     Route: 065

REACTIONS (8)
  - DYSPHAGIA [None]
  - BLOOD PRESSURE INCREASED [None]
  - TREMOR [None]
  - URTICARIA [None]
  - SENSATION OF FOREIGN BODY [None]
  - INFUSION RELATED REACTION [None]
  - RASH [None]
  - NAUSEA [None]
